FAERS Safety Report 8130066-7 (Version None)
Quarter: 2012Q1

REPORT INFORMATION
  Report Type: 
  Country: None (occurrence: None)
  Receive Date: 20120210
  Receipt Date: 20120131
  Transmission Date: 20120608
  Serious: Yes (Other)
  Sender: FDA-Public Use
  Company Number: CHPA2011US018564

PATIENT
  Sex: Male

DRUGS (3)
  1. EXCEDRIN TENSION HEADACHE CAPLETS [Suspect]
     Indication: MIGRAINE
     Dosage: UNK, UNK
     Route: 048
  2. EXCEDRIN EXTRA STRENGTH TABLETS [Suspect]
     Indication: MIGRAINE
     Dosage: UNK, UNK
     Route: 048
  3. EXCEDRIN MIGRAINE CAPLETS [Suspect]
     Indication: MIGRAINE
     Dosage: 2 DF, UNK
     Route: 048

REACTIONS (4)
  - THERAPEUTIC RESPONSE DECREASED [None]
  - DEPRESSION [None]
  - MIGRAINE [None]
  - HYPERTENSION [None]
